FAERS Safety Report 9805279 (Version 1)
Quarter: 2014Q1

REPORT INFORMATION
  Report Type: Spontaneous
  Country: US (occurrence: None)
  Receive Date: 20140107
  Receipt Date: 20140107
  Transmission Date: 20141002
  Serious: Yes (Life-Threatening)
  Sender: FDA-Public Use
  Company Number: None

PATIENT
  Age: 67 Year
  Sex: Male
  Weight: 179.6 kg

DRUGS (1)
  1. CITALOPRAM [Suspect]
     Indication: DEPRESSION
     Route: 048
     Dates: start: 20120307, end: 20120823

REACTIONS (7)
  - Diarrhoea [None]
  - Asthenia [None]
  - Ventricular tachycardia [None]
  - Hypokalaemia [None]
  - Hypomagnesaemia [None]
  - Electrocardiogram QT prolonged [None]
  - Torsade de pointes [None]
